FAERS Safety Report 13596756 (Version 1)
Quarter: 2017Q2

REPORT INFORMATION
  Report Type: Spontaneous
  Country: US (occurrence: US)
  Receive Date: 20170531
  Receipt Date: 20170531
  Transmission Date: 20170830
  Serious: No
  Sender: FDA-Public Use
  Company Number: US-PFIZER INC-2017238008

PATIENT
  Age: 64 Year
  Sex: Female

DRUGS (3)
  1. METFORMIN [Concomitant]
     Active Substance: METFORMIN HYDROCHLORIDE
     Indication: DIABETES MELLITUS
     Dosage: 500 MG, ER, ONCE A DAY
  2. CELECOXIB. [Suspect]
     Active Substance: CELECOXIB
     Indication: COLON CANCER
     Dosage: 200 MG, ONCE A DAY
     Route: 048
     Dates: start: 2015
  3. CELECOXIB. [Suspect]
     Active Substance: CELECOXIB
     Indication: ARTHRITIS

REACTIONS (1)
  - Drug ineffective [Unknown]
